FAERS Safety Report 8033123-9 (Version None)
Quarter: 2012Q1

REPORT INFORMATION
  Report Type: 
  Country: None (occurrence: None)
  Receive Date: 20120110
  Receipt Date: 20120110
  Transmission Date: 20120608
  Serious: Yes (Hospitalization)
  Sender: FDA-Public Use
  Company Number: None

PATIENT
  Sex: Female

DRUGS (6)
  1. LOSARTAN POTASSIUM [Concomitant]
  2. DILANTIN [Suspect]
     Indication: CONVULSION
     Dosage: 300MG
     Route: 048
     Dates: start: 19930101, end: 20120108
  3. METOPRIOLOL [Concomitant]
  4. PANTOPRAZOLE [Concomitant]
  5. PREMARIN [Concomitant]
  6. MULTI-VITAMIN [Concomitant]

REACTIONS (4)
  - HALLUCINATION [None]
  - PRODUCT QUALITY ISSUE [None]
  - PRODUCT MEASURED POTENCY ISSUE [None]
  - CONVULSION [None]
